FAERS Safety Report 8508486-8 (Version None)
Quarter: 2012Q3

REPORT INFORMATION
  Report Type: 
  Country: None (occurrence: None)
  Receive Date: 20120713
  Receipt Date: 20120705
  Transmission Date: 20120928
  Serious: No
  Sender: FDA-Public Use
  Company Number: US-B.I. PHARMACEUTICALS,INC./RIDGEFIELD-2012-BP-15084BP

PATIENT
  Sex: Female

DRUGS (8)
  1. METFORMIN HYDROCHLORIDE [Concomitant]
     Indication: DIABETES MELLITUS
     Dosage: 2000 MG
     Route: 048
  2. ZANTAC [Suspect]
     Indication: GASTROOESOPHAGEAL REFLUX DISEASE
     Dosage: 75 MG
     Route: 048
     Dates: start: 20120625
  3. CARVEDILOL [Concomitant]
     Indication: HYPERTENSION
     Dosage: 50 MG
     Route: 048
  4. SIMVASTATIN [Concomitant]
     Indication: BLOOD CHOLESTEROL INCREASED
     Dosage: 40 MG
     Route: 048
  5. FOLIC ACID [Concomitant]
     Indication: PROPHYLAXIS
     Dosage: 1 MG
     Route: 048
  6. HYDRALAZINE HYDROCHLORIDE [Concomitant]
     Indication: HYPERTENSION
     Dosage: (TABLET) STRENGTH: 25 MG; DAILY DOSE: 200 MG
     Route: 048
  7. LISINOPRIL AND HYDROCHLOROTHIAZIDE [Concomitant]
     Indication: HYPERTENSION
     Route: 048
  8. AMLODIPINE [Concomitant]
     Indication: HYPERTENSION
     Dosage: 10 MG
     Route: 048

REACTIONS (3)
  - RETCHING [None]
  - CHOKING SENSATION [None]
  - COUGH [None]
